FAERS Safety Report 5215788-X (Version None)
Quarter: 2007Q1

REPORT INFORMATION
  Report Type: 
  Country: None (occurrence: None)
  Receive Date: 20070123
  Receipt Date: 20070110
  Transmission Date: 20070707
  Serious: Yes (Hospitalization)
  Sender: FDA-Public Use
  Company Number: 971211-008013452

PATIENT
  Sex: Male
  Weight: 1.01 kg

DRUGS (6)
  1. HALDOL [Suspect]
     Route: 015
  2. HALDOL [Suspect]
     Indication: DRUG USE FOR UNKNOWN INDICATION
     Route: 015
  3. AMPICILLIN [Suspect]
     Indication: DRUG USE FOR UNKNOWN INDICATION
     Route: 015
  4. DIAZEPAM [Suspect]
     Indication: DRUG USE FOR UNKNOWN INDICATION
     Route: 015
  5. VALERIAN (ROOT) [Suspect]
     Indication: DRUG USE FOR UNKNOWN INDICATION
     Route: 048
  6. UNKNOWN [Concomitant]

REACTIONS (4)
  - ARRHYTHMIA [None]
  - PREMATURE BABY [None]
  - SEPSIS NEONATAL [None]
  - SMALL FOR DATES BABY [None]
